FAERS Safety Report 23813347 (Version 1)
Quarter: 2024Q2

REPORT INFORMATION
  Report Type: Spontaneous
  Country: US (occurrence: US)
  Receive Date: 20240503
  Receipt Date: 20240503
  Transmission Date: 20240716
  Serious: No
  Sender: FDA-Public Use
  Company Number: US-TEVA-VS-3186383

PATIENT
  Age: 56 Year
  Sex: Male

DRUGS (13)
  1. AUSTEDO [Suspect]
     Active Substance: DEUTETRABENAZINE
     Indication: Tardive dyskinesia
     Route: 065
     Dates: start: 20240324, end: 20240404
  2. Aspirin oral tablet delayed release 8 mg [Concomitant]
     Indication: Product used for unknown indication
     Route: 065
  3. Fluticasone propionate inhalation aerosol [Concomitant]
     Indication: Product used for unknown indication
     Route: 065
  4. metoprolol tartrate oral tablet 20 mg [Concomitant]
     Indication: Product used for unknown indication
     Route: 048
  5. Losartan Potassium oral tablet 50 mg [Concomitant]
     Indication: Product used for unknown indication
     Route: 048
  6. FARXIGA [Concomitant]
     Active Substance: DAPAGLIFLOZIN PROPANEDIOL
     Indication: Product used for unknown indication
     Route: 048
  7. Simvastatin oral tablet 20 mg [Concomitant]
     Indication: Product used for unknown indication
     Route: 048
  8. Gabapentin oral capsule 100 mg [Concomitant]
     Indication: Product used for unknown indication
     Route: 048
  9. Glimepiride oral tablet 2 mg [Concomitant]
     Indication: Product used for unknown indication
     Route: 048
  10. Trulicity subcutaneous solution pen injector 1.5 mg/0.5 ml [Concomitant]
     Indication: Product used for unknown indication
     Dosage: 1.5 MG/0.5 ML
     Route: 058
  11. Tresiba Flex touch subcutaneous solution [Concomitant]
     Indication: Product used for unknown indication
     Route: 065
  12. omeprazole oral capsule delayed release 20 mg [Concomitant]
     Indication: Product used for unknown indication
     Route: 065
  13. Metformin Hcl oral tablet 1000 mg [Concomitant]
     Indication: Product used for unknown indication
     Route: 048

REACTIONS (4)
  - Depression [Unknown]
  - Somnolence [Recovering/Resolving]
  - Tremor [Unknown]
  - Nausea [Not Recovered/Not Resolved]
